FAERS Safety Report 11543426 (Version 1)
Quarter: 2015Q3

REPORT INFORMATION
  Report Type: Spontaneous
  Country: ES (occurrence: ES)
  Receive Date: 20150923
  Receipt Date: 20150923
  Transmission Date: 20151125
  Serious: Yes (Other)
  Sender: FDA-Public Use
  Company Number: PHHY2015ES112596

PATIENT
  Age: 42 Year
  Sex: Female

DRUGS (3)
  1. CLOBETASOL [Suspect]
     Active Substance: CLOBETASOL
     Indication: ANDROGENETIC ALOPECIA
     Route: 061
  2. MINOXIDIL. [Suspect]
     Active Substance: MINOXIDIL
     Indication: ANDROGENETIC ALOPECIA
     Route: 061
  3. PROGESTERONE. [Suspect]
     Active Substance: PROGESTERONE
     Indication: ANDROGENETIC ALOPECIA
     Route: 061

REACTIONS (1)
  - Hypertrichosis [Recovering/Resolving]
